FAERS Safety Report 21672591 (Version 1)
Quarter: 2022Q4

REPORT INFORMATION
  Report Type: Spontaneous
  Country: US (occurrence: None)
  Receive Date: 20221201
  Receipt Date: 20221201
  Transmission Date: 20230112
  Serious: No
  Sender: FDA-Public Use
  Company Number: None

PATIENT
  Age: 56 Year
  Sex: Male

DRUGS (4)
  1. TALTZ [Suspect]
     Active Substance: IXEKIZUMAB
     Indication: Psoriasis
     Dosage: INJECT 1 PEN UNDER THE SKIN (SUBCUTANEOUS INJECTION) EVERY 14 DAYS
     Route: 058
     Dates: start: 20210310
  2. TALTZ [Suspect]
     Active Substance: IXEKIZUMAB
     Dosage: OTHER QUANTITY : 1 PEN;?FREQUENCY : EVERY OTHER WEEK;?
     Route: 058
  3. OZEMPIC [Concomitant]
     Active Substance: SEMAGLUTIDE
  4. PREDNISONE [Concomitant]
     Active Substance: PREDNISONE

REACTIONS (6)
  - Condition aggravated [None]
  - Rash [None]
  - Discomfort [None]
  - Loss of personal independence in daily activities [None]
  - Pain [None]
  - Cardiac failure [None]

NARRATIVE: CASE EVENT DATE: 20221201
